FAERS Safety Report 10105387 (Version 2)
Quarter: 2014Q3

REPORT INFORMATION
  Report Type: Other
  Country: US (occurrence: US)
  Receive Date: 20140424
  Receipt Date: 20140804
  Transmission Date: 20150326
  Serious: Yes (Death, Hospitalization, Other)
  Sender: FDA-Public Use
  Company Number: US-GSKPPD-2014GSK003283

PATIENT
  Age: 86 Year
  Sex: Female

DRUGS (4)
  1. ASPIRIN EC [Concomitant]
     Active Substance: ASPIRIN
  2. AVANDIA [Suspect]
     Active Substance: ROSIGLITAZONE MALEATE
     Indication: DIABETES MELLITUS
     Route: 048
     Dates: start: 2006
  3. VERAPAMIL [Concomitant]
     Active Substance: VERAPAMIL HYDROCHLORIDE
  4. MONOPRIL [Concomitant]
     Active Substance: FOSINOPRIL SODIUM

REACTIONS (4)
  - Acute respiratory failure [None]
  - Sudden cardiac death [Fatal]
  - Myocardial infarction [None]
  - Cardiac failure congestive [None]

NARRATIVE: CASE EVENT DATE: 20080723
